FAERS Safety Report 12929430 (Version 1)
Quarter: 2016Q4

REPORT INFORMATION
  Report Type: Report from Study
  Country: CO (occurrence: CO)
  Receive Date: 20161110
  Receipt Date: 20161110
  Transmission Date: 20170207
  Serious: Yes (Hospitalization, Other)
  Sender: FDA-Public Use
  Company Number: CO-VIFOR (INTERNATIONAL) INC.-VIT-2016-07296

PATIENT
  Age: 49 Year
  Sex: Male

DRUGS (2)
  1. VALGANCICLOVIR. [Suspect]
     Active Substance: VALGANCICLOVIR
     Indication: ANTIVIRAL PROPHYLAXIS
     Route: 048
     Dates: start: 20160212
  2. MIRCERA [Suspect]
     Active Substance: METHOXY POLYETHYLENE GLYCOL-EPOETIN BETA
     Indication: NEPHROGENIC ANAEMIA
     Route: 058
     Dates: start: 20160506

REACTIONS (6)
  - Haemoglobin decreased [Recovered/Resolved]
  - Gastroenteritis bacterial [Recovered/Resolved]
  - Pyrexia [Recovered/Resolved]
  - Hypercalcaemia [Recovered/Resolved]
  - Thrombocytopenia [Recovered/Resolved]
  - Urinary tract infection [Recovered/Resolved]

NARRATIVE: CASE EVENT DATE: 201602
